FAERS Safety Report 23702863 (Version 1)
Quarter: 2024Q2

REPORT INFORMATION
  Report Type: Spontaneous
  Country: CN (occurrence: CN)
  Receive Date: 20240403
  Receipt Date: 20240403
  Transmission Date: 20240715
  Serious: Yes (Other)
  Sender: FDA-Public Use
  Company Number: None

PATIENT
  Age: 42 Year
  Sex: Female
  Weight: 78 kg

DRUGS (5)
  1. CYCLOPHOSPHAMIDE [Suspect]
     Active Substance: CYCLOPHOSPHAMIDE
     Indication: Breast cancer female
     Dosage: 1.1 G, ONE TIME IN ONE DAY, D1, DILUTED WITH 0.9% OF 50 ML OF SODIUM CHLORIDE
     Route: 041
     Dates: start: 20240223, end: 20240223
  2. SODIUM CHLORIDE [Suspect]
     Active Substance: SODIUM CHLORIDE
     Indication: Medication dilution
     Dosage: 50 ML, ONE TIME IN ONE DAY, D1, DOSAGE FORM: INJECTION, USED TO DILUTE 1.1 G OF CYCLOPHOSPHAMIDE
     Route: 041
     Dates: start: 20240223, end: 20240223
  3. SODIUM CHLORIDE [Suspect]
     Active Substance: SODIUM CHLORIDE
     Dosage: 100 ML, ONE TIME IN ONE DAY, D1, DOSAGE FORM: INJECTION, ALONG WITH 50 ML OF STERILE WATER FOR INJEC
     Route: 041
     Dates: start: 20240223, end: 20240223
  4. WATER FOR INJECTION [Suspect]
     Active Substance: WATER
     Indication: Medication dilution
     Dosage: 50 ML, ONE TIME IN ONE DAY, D1, ALONG WITH 100 ML OF SODIUM CHLORIDE USED TO DILUTE 135 MG OF EPIRUB
     Route: 041
     Dates: start: 20240223, end: 20240223
  5. EPIRUBICIN HYDROCHLORIDE [Suspect]
     Active Substance: EPIRUBICIN HYDROCHLORIDE
     Indication: Breast cancer female
     Dosage: 135 MG, ONE TIME IN ONE DAY, D1, DILUTED WITH 50 ML OF STERILE WATER FOR INJECTION AND 0.9% 100 ML O
     Route: 041
     Dates: start: 20240223, end: 20240223

REACTIONS (1)
  - Leukopenia [Unknown]

NARRATIVE: CASE EVENT DATE: 20240315
